FAERS Safety Report 25735872 (Version 2)
Quarter: 2025Q3

REPORT INFORMATION
  Report Type: Spontaneous
  Country: JP (occurrence: JP)
  Receive Date: 20250828
  Receipt Date: 20250902
  Transmission Date: 20251021
  Serious: Yes (Life-Threatening, Hospitalization)
  Sender: EISAI
  Company Number: JP-Eisai-202506487_LEN-EC_P_1

PATIENT
  Age: 57 Year
  Sex: Female

DRUGS (2)
  1. LENVATINIB [Suspect]
     Active Substance: LENVATINIB
     Indication: Endometrial cancer recurrent
     Route: 048
     Dates: start: 20240821, end: 20240901
  2. KEYTRUDA [Suspect]
     Active Substance: PEMBROLIZUMAB
     Indication: Endometrial cancer recurrent
     Dosage: 1 COURSE
     Route: 042
     Dates: start: 20240821, end: 20240821

REACTIONS (1)
  - Haemophagocytic lymphohistiocytosis [Recovering/Resolving]

NARRATIVE: CASE EVENT DATE: 20240902
